FAERS Safety Report 6209885-X (Version None)
Quarter: 2009Q2

REPORT INFORMATION
  Report Type: 
  Country: None (occurrence: None)
  Receive Date: 20090528
  Receipt Date: 20090528
  Transmission Date: 20091009
  Serious: Yes (Hospitalization)
  Sender: FDA-Public Use
  Company Number: None

PATIENT
  Sex: Female
  Weight: 66.8 kg

DRUGS (7)
  1. CARBOPLATIN [Suspect]
     Dosage: 610 MG
     Dates: end: 20081211
  2. TAXOL [Suspect]
     Dosage: 3O8 MG
     Dates: end: 20081211
  3. COLACE [Concomitant]
  4. HYDROCODONE BITARTRATE [Concomitant]
  5. LEVAQUIN [Concomitant]
  6. ODANSETRON [Concomitant]
  7. PROCHLOPERAZINE [Concomitant]

REACTIONS (5)
  - ENTEROCUTANEOUS FISTULA [None]
  - INCISION SITE ERYTHEMA [None]
  - NAUSEA [None]
  - PYREXIA [None]
  - VOMITING [None]
